FAERS Safety Report 5325311-7 (Version None)
Quarter: 2007Q2

REPORT INFORMATION
  Report Type: 
  Country: None (occurrence: None)
  Receive Date: 20070509
  Receipt Date: 20070504
  Transmission Date: 20071010
  Serious: Yes (Hospitalization)
  Sender: FDA-Public Use
  Company Number: GRT 2007-11080

PATIENT
  Age: 63 Year
  Sex: Female
  Weight: 54.88 kg

DRUGS (8)
  1. LIDOCAINE HCL [Suspect]
     Indication: ANAESTHESIA
     Dosage: INJECTION*
     Dates: start: 20061103
  2. BOTOX [Suspect]
     Indication: SKIN WRINKLING
     Dosage: INTRAMUSCULAR
     Route: 030
     Dates: start: 20061103
  3. HYALURONIC ACID [Suspect]
     Dates: start: 20061103
  4. EMLA [Concomitant]
  5. LORATADINE [Concomitant]
  6. PREMARIN [Concomitant]
  7. SALBUTAMOL [Concomitant]
  8. DIURETIC [Concomitant]

REACTIONS (2)
  - CONTUSION [None]
  - HYPERSENSITIVITY [None]
